FAERS Safety Report 11338625 (Version 1)
Quarter: 2015Q3

REPORT INFORMATION
  Report Type: Spontaneous
  Country: US (occurrence: US)
  Receive Date: 20150803
  Receipt Date: 20150803
  Transmission Date: 20151125
  Serious: No
  Sender: FDA-Public Use
  Company Number: US-ELI_LILLY_AND_COMPANY-US200801001511

PATIENT
  Age: 14 Year
  Sex: Male
  Weight: 42.63 kg

DRUGS (1)
  1. STRATTERA [Suspect]
     Active Substance: ATOMOXETINE HYDROCHLORIDE
     Dosage: 65 MG, DAILY (1/D)
     Route: 048

REACTIONS (1)
  - Prescribed overdose [Unknown]
